FAERS Safety Report 10961792 (Version 2)
Quarter: 2015Q2

REPORT INFORMATION
  Report Type: Spontaneous
  Country: JP (occurrence: JP)
  Receive Date: 20150327
  Receipt Date: 20150404
  Transmission Date: 20150821
  Serious: Yes (Life-Threatening, Hospitalization)
  Sender: FDA-Public Use
  Company Number: PHJP2015JP003256

PATIENT
  Age: 57 Year
  Sex: Female
  Weight: 36 kg

DRUGS (5)
  1. MOSAPRIDE [Concomitant]
     Active Substance: MOSAPRIDE
     Indication: PRODUCT USED FOR UNKNOWN INDICATION
     Route: 065
     Dates: start: 20150306
  2. NOVAMIN [Concomitant]
     Active Substance: PROCHLORPERAZINE MALEATE
     Indication: PRODUCT USED FOR UNKNOWN INDICATION
     Route: 065
     Dates: start: 20150306
  3. OXYCONTIN [Concomitant]
     Active Substance: OXYCODONE HYDROCHLORIDE
     Indication: PRODUCT USED FOR UNKNOWN INDICATION
     Route: 065
     Dates: start: 20150306
  4. AFINITOR [Suspect]
     Active Substance: EVEROLIMUS
     Indication: BREAST CANCER RECURRENT
     Dosage: 5 MG, QD
     Route: 048
     Dates: start: 20150306, end: 201503
  5. MAGMITT [Concomitant]
     Active Substance: MAGNESIUM OXIDE
     Indication: PRODUCT USED FOR UNKNOWN INDICATION
     Route: 065
     Dates: start: 20150306

REACTIONS (11)
  - Interstitial lung disease [Recovering/Resolving]
  - Dyspnoea [Recovering/Resolving]
  - Respiratory disorder [Recovering/Resolving]
  - Wheezing [Recovering/Resolving]
  - White blood cell count decreased [Unknown]
  - Tachypnoea [Recovering/Resolving]
  - Crepitations [Recovering/Resolving]
  - Malignant neoplasm progression [Unknown]
  - Pleural effusion [Recovering/Resolving]
  - Chest X-ray abnormal [Recovering/Resolving]
  - Cell marker increased [Recovering/Resolving]

NARRATIVE: CASE EVENT DATE: 20150311
